FAERS Safety Report 10461868 (Version 1)
Quarter: 2014Q3

REPORT INFORMATION
  Report Type: Spontaneous
  Country: US (occurrence: US)
  Receive Date: 20140918
  Receipt Date: 20140918
  Transmission Date: 20150326
  Serious: Yes (Other)
  Sender: FDA-Public Use
  Company Number: US-BAYER-2014-137266

PATIENT
  Age: 36 Year
  Sex: Female

DRUGS (1)
  1. MIRENA [Suspect]
     Active Substance: LEVONORGESTREL
     Indication: MENORRHAGIA
     Dosage: 20 MCG/24HR, CONT
     Route: 015
     Dates: start: 2010

REACTIONS (6)
  - Genital haemorrhage [None]
  - Dysmenorrhoea [None]
  - Vaginal haemorrhage [None]
  - Menorrhagia [None]
  - Abdominal pain lower [None]
  - Abdominal pain lower [None]

NARRATIVE: CASE EVENT DATE: 2010
